FAERS Safety Report 24171128 (Version 1)
Quarter: 2024Q3

REPORT INFORMATION
  Report Type: Report from Study
  Country: ZA (occurrence: ZA)
  Receive Date: 20240805
  Receipt Date: 20240805
  Transmission Date: 20241016
  Serious: Yes (Other)
  Sender: NOVARTIS
  Company Number: ZA-002147023-NVSC2024ZA154149

PATIENT
  Age: 60 Year
  Sex: Male

DRUGS (7)
  1. COSENTYX [Suspect]
     Active Substance: SECUKINUMAB
     Indication: Psoriatic arthropathy
     Dosage: 150 MG, QW (1 PRE-FILLED PEN AT WEEK 0,1,2 AND 3 FOLLOWED BY MAINTENANCE DOSE 150 MG, QMO FROM WEEK
     Route: 058
  2. COSENTYX [Suspect]
     Active Substance: SECUKINUMAB
     Dosage: 150 MG, QW (1 PRE-FILLED PEN AT WEEK 0,1,2 AND 3 FOLLOWED BY MAINTENANCE DOSE 150 MG, QMO FROM WEEK
     Route: 058
  3. COSENTYX [Suspect]
     Active Substance: SECUKINUMAB
     Dosage: 300 MG (2 PRE-FILLED PEN), QMO
     Route: 058
  4. COSENTYX [Suspect]
     Active Substance: SECUKINUMAB
     Dosage: 300 MG (2 PRE-FILLED PEN), QMO
     Route: 058
     Dates: start: 20210525
  5. COSENTYX [Suspect]
     Active Substance: SECUKINUMAB
     Dosage: 300 MG (2 PRE-FILLED PEN), QMO
     Route: 058
     Dates: start: 20240725
  6. METHOTREXATE [Concomitant]
     Active Substance: METHOTREXATE
     Indication: Product used for unknown indication
     Dosage: 25 MG, QW
     Route: 065
     Dates: start: 201809
  7. BETAMETHASONE DIPROPIONATE\CALCIPOTRIENE MONOHYDRATE [Concomitant]
     Active Substance: BETAMETHASONE DIPROPIONATE\CALCIPOTRIENE MONOHYDRATE
     Indication: Product used for unknown indication
     Dosage: 0.05/0.5 MG, QD
     Route: 065
     Dates: start: 201809

REACTIONS (1)
  - White blood cell disorder [Not Recovered/Not Resolved]
